FAERS Safety Report 9571330 (Version 1)
Quarter: 2013Q3

REPORT INFORMATION
  Report Type: Spontaneous
  Country: US (occurrence: None)
  Receive Date: 20130927
  Receipt Date: 20130927
  Transmission Date: 20140515
  Serious: Yes (Hospitalization)
  Sender: FDA-Public Use
  Company Number: None

PATIENT
  Age: 38 Year
  Sex: Female

DRUGS (1)
  1. MIRENA [Suspect]

REACTIONS (6)
  - Haemorrhage [None]
  - Weight increased [None]
  - Headache [None]
  - Increased appetite [None]
  - Mood swings [None]
  - Uterine perforation [None]
